FAERS Safety Report 23289761 (Version 1)
Quarter: 2023Q4

REPORT INFORMATION
  Report Type: Report from Study
  Country: CN (occurrence: CN)
  Receive Date: 20231212
  Receipt Date: 20231212
  Transmission Date: 20240110
  Serious: Yes (Hospitalization)
  Sender: FDA-Public Use
  Company Number: CN-VER-202300002

PATIENT
  Age: 73 Year
  Sex: Male

DRUGS (1)
  1. TRIPTORELIN PAMOATE [Suspect]
     Active Substance: TRIPTORELIN PAMOATE
     Route: 030
     Dates: start: 20230822, end: 20230822

REACTIONS (1)
  - Skin oedema [Recovering/Resolving]

NARRATIVE: CASE EVENT DATE: 20231002
